FAERS Safety Report 5863431-9 (Version None)
Quarter: 2008Q3

REPORT INFORMATION
  Report Type: 
  Country: None (occurrence: None)
  Receive Date: 20080828
  Receipt Date: 20080826
  Transmission Date: 20090109
  Serious: Yes (Life-Threatening)
  Sender: FDA-Public Use
  Company Number: PHEH2008US07511

PATIENT
  Sex: Female

DRUGS (2)
  1. GLEEVEC [Suspect]
  2. CLONIDINE [Suspect]

REACTIONS (1)
  - FEELING ABNORMAL [None]
